FAERS Safety Report 24383968 (Version 2)
Quarter: 2024Q4

REPORT INFORMATION
  Report Type: Spontaneous
  Country: US (occurrence: US)
  Receive Date: 20241001
  Receipt Date: 20241106
  Transmission Date: 20250115
  Serious: No
  Sender: JOHNSON AND JOHNSON
  Company Number: US-JNJFOC-20240956603

PATIENT

DRUGS (1)
  1. TALVEY [Suspect]
     Active Substance: TALQUETAMAB-TGVS
     Indication: Product used for unknown indication
     Route: 065
     Dates: start: 202404

REACTIONS (5)
  - Drug ineffective [Unknown]
  - Ageusia [Unknown]
  - Saliva altered [Unknown]
  - Rash [Recovering/Resolving]
  - Skin exfoliation [Unknown]
